FAERS Safety Report 9255456 (Version 1)
Quarter: 2013Q2

REPORT INFORMATION
  Report Type: Spontaneous
  Country: US (occurrence: US)
  Receive Date: 20130425
  Receipt Date: 20130425
  Transmission Date: 20140414
  Serious: No
  Sender: FDA-Public Use
  Company Number: US-B.I. PHARMACEUTICALS,INC./RIDGEFIELD-2013-BI-10306BP

PATIENT
  Sex: Female

DRUGS (2)
  1. MOBIC [Suspect]
     Route: 048
  2. CELEBREX [Concomitant]
     Indication: ARTHRITIS
     Dosage: 600 MG
     Route: 048

REACTIONS (1)
  - Drug ineffective [Unknown]
